FAERS Safety Report 24961687 (Version 1)
Quarter: 2025Q1

REPORT INFORMATION
  Report Type: Report from Study
  Country: CN (occurrence: CN)
  Receive Date: 20250212
  Receipt Date: 20250212
  Transmission Date: 20250409
  Serious: Yes (Death, Hospitalization, Other)
  Sender: TAKEDA
  Company Number: CN-TAKEDA-2025TUS013542

PATIENT
  Age: 56 Year
  Sex: Male

DRUGS (1)
  1. ADVATE [Suspect]
     Active Substance: ANTIHEMOPHILIC FACTOR, HUMAN RECOMBINANT
     Indication: Factor VIII deficiency
     Dates: start: 20241105, end: 20250202

REACTIONS (7)
  - Lung neoplasm malignant [Fatal]
  - Coma [Unknown]
  - Metastases to central nervous system [Unknown]
  - Nerve compression [Unknown]
  - Metastases to bone [Unknown]
  - Metastases to liver [Unknown]
  - Brain neoplasm [Unknown]

NARRATIVE: CASE EVENT DATE: 20250116
